FAERS Safety Report 5160654-1 (Version None)
Quarter: 2006Q4

REPORT INFORMATION
  Report Type: 
  Country: None (occurrence: None)
  Receive Date: 20061121
  Receipt Date: 20061108
  Transmission Date: 20070319
  Serious: Yes (Other)
  Sender: FDA-Public Use
  Company Number: 2006111769

PATIENT
  Sex: Male

DRUGS (6)
  1. DOSTINEX [Suspect]
     Indication: PITUITARY TUMOUR
     Dosage: (0.5 MG)
     Dates: start: 20051001
  2. CABERGOLINE [Suspect]
     Indication: PITUITARY TUMOUR
     Dates: start: 20060101, end: 20060101
  3. GLUCOPHAGE [Concomitant]
  4. LEVOXYL [Concomitant]
  5. UNIVASC [Concomitant]
  6. ALL OTHER THERAPEUTIC PRODUCTS [Concomitant]

REACTIONS (1)
  - OEDEMA [None]
